FAERS Safety Report 9440155 (Version 2)
Quarter: 2013Q3

REPORT INFORMATION
  Report Type: Spontaneous
  Country: HR (occurrence: HR)
  Receive Date: 20130805
  Receipt Date: 20130827
  Transmission Date: 20140515
  Serious: Yes (Death, Other)
  Sender: FDA-Public Use
  Company Number: HR-ABBOTT-13P-216-1125237-00

PATIENT
  Age: 67 Year
  Sex: Female

DRUGS (1)
  1. HUMIRA [Suspect]
     Indication: RHEUMATOID ARTHRITIS
     Dates: start: 20111207

REACTIONS (6)
  - Fasciitis [Fatal]
  - Skin infection [Fatal]
  - Sepsis [Fatal]
  - Injury [Unknown]
  - Pyrexia [Fatal]
  - Sepsis [Fatal]
